FAERS Safety Report 5519165-3 (Version None)
Quarter: 2007Q4

REPORT INFORMATION
  Report Type: 
  Country: None (occurrence: None)
  Receive Date: 20071114
  Receipt Date: 20071102
  Transmission Date: 20080405
  Serious: Yes (Disabling)
  Sender: FDA-Public Use
  Company Number: GXKR2007GB09481

PATIENT
  Age: 34 Year
  Sex: Female
  Weight: 62 kg

DRUGS (5)
  1. PROPRANOLOL [Suspect]
     Indication: ANXIETY
     Dosage: 80 MG, ORAL; 40 MG, ORAL
     Route: 048
     Dates: end: 20030101
  2. PROPRANOLOL [Suspect]
     Indication: ANXIETY
     Dosage: 80 MG, ORAL; 40 MG, ORAL
     Route: 048
     Dates: start: 20030101
  3. OLANZAPINE [Suspect]
     Indication: AGITATION
     Dosage: 5 MG, ORAL
     Route: 048
     Dates: start: 19950101
  4. CARBAMAZEPINE [Concomitant]
  5. ZOPICLONE (ZOPICLONE) [Concomitant]

REACTIONS (3)
  - ALOPECIA [None]
  - TINNITUS [None]
  - WEIGHT INCREASED [None]
